FAERS Safety Report 9526444 (Version 3)
Quarter: 2013Q4

REPORT INFORMATION
  Report Type: Spontaneous
  Country: US (occurrence: US)
  Receive Date: 20130916
  Receipt Date: 20131115
  Transmission Date: 20140711
  Serious: Yes (Hospitalization, Disabling)
  Sender: FDA-Public Use
  Company Number: US-TEVA-432072USA

PATIENT
  Age: 65 Year
  Sex: Male

DRUGS (7)
  1. CLOZAPINE [Suspect]
  2. LUVOX [Interacting]
  3. LEXAPRO [Interacting]
  4. BENZATROPINE MESILATE [Concomitant]
     Indication: DYSKINESIA
  5. DEPAKOTE [Concomitant]
  6. PRILOSEC [Concomitant]
  7. ANTIDEPRESSANT [Concomitant]

REACTIONS (6)
  - Parkinsonism [Recovering/Resolving]
  - Obsessive-compulsive disorder [Recovering/Resolving]
  - Toxicity to various agents [Recovering/Resolving]
  - Drug interaction [Recovering/Resolving]
  - Cogwheel rigidity [Unknown]
  - Akathisia [Unknown]
